FAERS Safety Report 8943251 (Version 1)
Quarter: 2012Q4

REPORT INFORMATION
  Report Type: 
  Country: US (occurrence: US)
  Receive Date: 20121204
  Receipt Date: 20121204
  Transmission Date: 20130627
  Serious: No
  Sender: FDA-Public Use
  Company Number: US-009507513-1211USA010949

PATIENT
  Sex: Female

DRUGS (4)
  1. NASONEX [Suspect]
     Indication: DYSPNOEA
     Dosage: 2 sprays in each nostril once a day
     Route: 045
     Dates: start: 2012, end: 2012
  2. NASONEX [Suspect]
     Indication: NASAL SEPTUM DEVIATION
     Dosage: 2 sprays in each nostril once a day
     Route: 045
     Dates: start: 201210
  3. PRILOSEC [Concomitant]
     Route: 048
  4. VITAMINS (UNSPECIFIED) [Concomitant]

REACTIONS (4)
  - Nasal discomfort [Recovering/Resolving]
  - Nasal ulcer [Recovering/Resolving]
  - Nasal discomfort [Recovering/Resolving]
  - Nasal ulcer [Recovering/Resolving]
